FAERS Safety Report 8602628-1 (Version None)
Quarter: 2012Q3

REPORT INFORMATION
  Report Type: 
  Country: None (occurrence: None)
  Receive Date: 20120817
  Receipt Date: 20120814
  Transmission Date: 20120928
  Serious: Yes (Hospitalization)
  Sender: FDA-Public Use
  Company Number: US-AMGEN-USASP2012051279

PATIENT
  Age: 55 Year
  Sex: Female

DRUGS (2)
  1. ENBREL [Suspect]
     Indication: RHEUMATOID ARTHRITIS
     Dosage: 50 MG, QWK
     Dates: start: 20110601, end: 20110901
  2. METHOTREXATE [Concomitant]
     Dosage: 5 MG, UNK
     Dates: start: 20101001

REACTIONS (3)
  - HYSTERECTOMY [None]
  - RHEUMATOID ARTHRITIS [None]
  - POST PROCEDURAL HAEMATOMA [None]
